FAERS Safety Report 9705303 (Version 1)
Quarter: 2013Q4

REPORT INFORMATION
  Report Type: Spontaneous
  Country: DE (occurrence: DE)
  Receive Date: 20131122
  Receipt Date: 20131122
  Transmission Date: 20140711
  Serious: Yes (Congenital Anomaly)
  Sender: FDA-Public Use
  Company Number: DE-BAYER-2013-141194

PATIENT
  Sex: Female

DRUGS (1)
  1. YASMIN [Suspect]
     Route: 064

REACTIONS (3)
  - Cerebral ventricle dilatation [None]
  - Cerebellar hypoplasia [None]
  - Foetal exposure during pregnancy [None]
